FAERS Safety Report 20490995 (Version 1)
Quarter: 2022Q1

REPORT INFORMATION
  Report Type: Report from Study
  Country: US (occurrence: US)
  Receive Date: 20220218
  Receipt Date: 20220218
  Transmission Date: 20220424
  Serious: No
  Sender: FDA-Public Use
  Company Number: US-Ipsen Biopharmaceuticals, Inc.-2022-02404

PATIENT
  Sex: Female

DRUGS (1)
  1. SOMATULINE DEPOT [Suspect]
     Active Substance: LANREOTIDE ACETATE
     Indication: Carcinoid tumour of the duodenum
     Route: 058
     Dates: start: 20180523

REACTIONS (4)
  - Injection site mass [Recovering/Resolving]
  - Dysphagia [Recovered/Resolved]
  - Injection site pain [Recovering/Resolving]
  - Off label use [Unknown]
